FAERS Safety Report 18517533 (Version 1)
Quarter: 2020Q4

REPORT INFORMATION
  Report Type: Report from Study
  Country: FR (occurrence: FR)
  Receive Date: 20201118
  Receipt Date: 20201118
  Transmission Date: 20210114
  Serious: Yes (Hospitalization, Other)
  Sender: FDA-Public Use
  Company Number: FR-BRISTOL-MYERS SQUIBB COMPANY-BMS-2020-094877

PATIENT
  Age: 48 Year
  Sex: Male
  Weight: 104 kg

DRUGS (12)
  1. NIVOLUMAB [Suspect]
     Active Substance: NIVOLUMAB
     Indication: METASTASES TO LIVER
  2. IPILIMUMAB [Suspect]
     Active Substance: IPILIMUMAB
     Indication: RENAL CANCER
     Dosage: 105 MILLIGRAM, Q3WK
     Route: 065
     Dates: start: 20201029
  3. ENALAPRIL [Concomitant]
     Active Substance: ENALAPRIL
     Indication: HYPERTENSION
     Dosage: 32 UNIT, QD
     Route: 048
  4. NIVOLUMAB [Suspect]
     Active Substance: NIVOLUMAB
     Indication: RENAL CANCER
     Dosage: 310 MILLIGRAM, Q3WK
     Route: 065
     Dates: start: 20201029
  5. METFORMIN [Concomitant]
     Active Substance: METFORMIN HYDROCHLORIDE
     Indication: DIABETES MELLITUS
     Dosage: 1000 MILLIGRAM, TID
     Route: 048
  6. ATORVASTATIN [Concomitant]
     Active Substance: ATORVASTATIN
     Indication: HYPERCHOLESTEROLAEMIA
     Dosage: 80 MILLIGRAM
     Route: 048
  7. IPILIMUMAB [Suspect]
     Active Substance: IPILIMUMAB
     Indication: METASTASES TO LUNG
  8. LERCANIDIPINE [Concomitant]
     Active Substance: LERCANIDIPINE
     Indication: HYPERTENSION
     Dosage: 10 MILLIGRAM
     Route: 065
  9. IPILIMUMAB [Suspect]
     Active Substance: IPILIMUMAB
     Indication: METASTASES TO LIVER
  10. NIVOLUMAB [Suspect]
     Active Substance: NIVOLUMAB
     Indication: METASTASES TO LUNG
  11. ACARBOSE. [Concomitant]
     Active Substance: ACARBOSE
     Indication: DIABETES MELLITUS
     Dosage: 100 MILLIGRAM, TID
     Route: 048
  12. TRULICITY [Concomitant]
     Active Substance: DULAGLUTIDE
     Indication: DIABETES MELLITUS
     Dosage: 1.5 MILLIGRAM
     Route: 058

REACTIONS (4)
  - Acute kidney injury [Not Recovered/Not Resolved]
  - Spinal fracture [Unknown]
  - Off label use [Unknown]
  - Traumatic intracranial haemorrhage [Unknown]

NARRATIVE: CASE EVENT DATE: 20201104
